FAERS Safety Report 5167997-6 (Version None)
Quarter: 2006Q4

REPORT INFORMATION
  Report Type: 
  Country: None (occurrence: None)
  Receive Date: 20061208
  Receipt Date: 20060111
  Transmission Date: 20070319
  Serious: No
  Sender: FDA-Public Use
  Company Number: US-GLAXOSMITHKLINE-A0588824A

PATIENT
  Age: 60 Year
  Sex: Female

DRUGS (4)
  1. AVANDAMET [Suspect]
     Route: 048
  2. ACTOS [Suspect]
     Indication: DRUG USE FOR UNKNOWN INDICATION
  3. PRAVACHOL [Concomitant]
     Route: 050
  4. ZANTAC [Concomitant]

REACTIONS (2)
  - HEART RATE INCREASED [None]
  - PANIC ATTACK [None]
